FAERS Safety Report 7618089-5 (Version None)
Quarter: 2011Q3

REPORT INFORMATION
  Report Type: 
  Country: None (occurrence: None)
  Receive Date: 20110718
  Receipt Date: 20110707
  Transmission Date: 20111222
  Serious: Yes (Life-Threatening, Hospitalization)
  Sender: FDA-Public Use
  Company Number: FR-US-EMD SERONO, INC.-220001N04FRA

PATIENT
  Sex: Female
  Weight: 73 kg

DRUGS (11)
  1. SAIZEN [Suspect]
     Dates: start: 20050411
  2. LEVOTHYROXINE SODIUM [Concomitant]
     Indication: HYPOPITUITARISM
     Route: 048
     Dates: start: 19950113
  3. PAROXETINE HCL [Concomitant]
     Indication: DEPRESSION
     Route: 048
     Dates: start: 19961201
  4. LOXAPINE HCL [Concomitant]
     Indication: ABNORMAL BEHAVIOUR
     Route: 048
     Dates: start: 20021001, end: 20040810
  5. XENICAL [Concomitant]
     Indication: OBESITY
     Route: 048
     Dates: start: 19980101, end: 20040810
  6. SPASMINE [Concomitant]
     Indication: ANXIETY
     Route: 048
     Dates: start: 20031201, end: 20040810
  7. SAIZEN [Suspect]
     Indication: HYPOPITUITARISM
     Route: 058
     Dates: start: 20040227, end: 20040809
  8. HYDROCORTISONE [Concomitant]
     Indication: BLOOD CORTISOL ABNORMAL
     Route: 048
     Dates: start: 19950516
  9. NORDETTE-21 [Concomitant]
     Indication: GONADOTROPHIN DEFICIENCY
     Route: 048
     Dates: start: 20021106, end: 20040810
  10. MINIRIN [Concomitant]
     Indication: DIABETES INSIPIDUS
     Route: 048
     Dates: start: 19960201
  11. VALIUM [Concomitant]
     Indication: ANXIETY
     Route: 048
     Dates: start: 20021001, end: 20040810

REACTIONS (2)
  - SUICIDE ATTEMPT [None]
  - DEPRESSION [None]
